FAERS Safety Report 22269543 (Version 2)
Quarter: 2023Q2

REPORT INFORMATION
  Report Type: Spontaneous
  Country: JP (occurrence: JP)
  Receive Date: 20230501
  Receipt Date: 20230508
  Transmission Date: 20230721
  Serious: Yes (Other)
  Sender: FDA-Public Use
  Company Number: JP-Eisai-202300957_LEN-EC_P_1

PATIENT
  Age: 67 Year
  Sex: Female

DRUGS (3)
  1. LENVIMA [Suspect]
     Active Substance: LENVATINIB
     Indication: Endometrial cancer
     Route: 048
  2. LENVIMA [Suspect]
     Active Substance: LENVATINIB
     Route: 048
  3. KEYTRUDA [Suspect]
     Active Substance: PEMBROLIZUMAB
     Indication: Endometrial cancer
     Route: 041

REACTIONS (4)
  - Intestinal obstruction [Recovering/Resolving]
  - Drug-induced liver injury [Unknown]
  - Diarrhoea [Unknown]
  - Pyrexia [Unknown]
